FAERS Safety Report 9896015 (Version 1)
Quarter: 2014Q1

REPORT INFORMATION
  Report Type: Spontaneous
  Country: US (occurrence: US)
  Receive Date: 20140213
  Receipt Date: 20140213
  Transmission Date: 20141002
  Serious: No
  Sender: FDA-Public Use
  Company Number: US-BRISTOL-MYERS SQUIBB COMPANY-18792911

PATIENT
  Age: 69 Year
  Sex: Female

DRUGS (1)
  1. ORENCIA [Suspect]
     Dosage: FIRST INFUSION :27FEB2013,SECOND ON 23 MAR2013,?LAST INFUSION: 10APR2013.?NO OF INF:4
     Route: 042
     Dates: start: 20130227

REACTIONS (1)
  - Drug ineffective [Unknown]
